FAERS Safety Report 5965514-1 (Version None)
Quarter: 2008Q4

REPORT INFORMATION
  Report Type: 
  Country: None (occurrence: None)
  Receive Date: 20081125
  Receipt Date: 20081114
  Transmission Date: 20090506
  Serious: Yes (Hospitalization)
  Sender: FDA-Public Use
  Company Number: JP-BAXTER-2008BH012617

PATIENT
  Age: 62 Year
  Sex: Male

DRUGS (15)
  1. ADVATE [Suspect]
     Indication: DENTAL CARE
     Route: 042
     Dates: start: 20080901
  2. ADVATE [Suspect]
     Indication: SURGERY
     Route: 042
     Dates: start: 20080901
  3. ADVATE [Suspect]
     Indication: FACTOR VIII DEFICIENCY
     Route: 042
     Dates: start: 20080901
  4. ADVATE [Suspect]
     Route: 042
     Dates: start: 20081007, end: 20081007
  5. ADVATE [Suspect]
     Route: 042
     Dates: start: 20081007, end: 20081007
  6. ADVATE [Suspect]
     Route: 042
     Dates: start: 20081007, end: 20081007
  7. ADVATE [Suspect]
     Route: 042
     Dates: start: 20081007, end: 20081007
  8. ADVATE [Suspect]
     Route: 042
     Dates: start: 20081007, end: 20081007
  9. ADVATE [Suspect]
     Route: 042
     Dates: start: 20081007, end: 20081007
  10. ADVATE [Suspect]
     Route: 042
     Dates: start: 20081008, end: 20081013
  11. ADVATE [Suspect]
     Route: 042
     Dates: start: 20081008, end: 20081013
  12. ADVATE [Suspect]
     Route: 042
     Dates: start: 20081008, end: 20081013
  13. ADVATE [Suspect]
     Route: 042
     Dates: start: 20081014, end: 20081017
  14. ADVATE [Suspect]
     Route: 042
     Dates: start: 20081014, end: 20081017
  15. ADVATE [Suspect]
     Route: 042
     Dates: start: 20081014, end: 20081017

REACTIONS (3)
  - BLEEDING TIME PROLONGED [None]
  - COMMINUTED FRACTURE [None]
  - FACTOR VIII INHIBITION [None]
